FAERS Safety Report 6210346-2 (Version None)
Quarter: 2009Q2

REPORT INFORMATION
  Report Type: 
  Country: None (occurrence: None)
  Receive Date: 20090601
  Receipt Date: 20090525
  Transmission Date: 20091009
  Serious: Yes (Hospitalization)
  Sender: FDA-Public Use
  Company Number: PHHY2008MX22688

PATIENT
  Age: 27 Year
  Sex: Female

DRUGS (7)
  1. TRILEPTAL [Suspect]
     Indication: EPILEPSY
     Dosage: 300 MG, BID
     Route: 048
     Dates: start: 20070701
  2. TRILEPTAL [Suspect]
     Dosage: 300 MG, 1 TAB DAILY
     Route: 048
  3. CLONAZEPAM [Concomitant]
  4. BROMAZEPAM [Concomitant]
  5. TOPAMAX [Concomitant]
  6. NEURONTIN [Concomitant]
  7. HALDOL [Concomitant]

REACTIONS (4)
  - ELECTROENCEPHALOGRAM ABNORMAL [None]
  - INJURY [None]
  - NECK INJURY [None]
  - ROAD TRAFFIC ACCIDENT [None]
